FAERS Safety Report 4739276-X (Version None)
Quarter: 2005Q3

REPORT INFORMATION
  Report Type: 
  Country: None (occurrence: None)
  Receive Date: 20050810
  Receipt Date: 20050107
  Transmission Date: 20060218
  Serious: No
  Sender: FDA-Public Use
  Company Number: US-GLAXOSMITHKLINE-A0539835A

PATIENT
  Age: 47 Year
  Sex: Female

DRUGS (2)
  1. PAXIL [Suspect]
     Indication: DEPRESSION
     Route: 048
     Dates: start: 19930901
  2. NO CONCURRENT MEDICATION [Concomitant]

REACTIONS (2)
  - ANGER [None]
  - BALANCE DISORDER [None]
